FAERS Safety Report 10006325 (Version 1)
Quarter: 2014Q1

REPORT INFORMATION
  Report Type: Spontaneous
  Country: US (occurrence: US)
  Receive Date: 20140313
  Receipt Date: 20140313
  Transmission Date: 20141002
  Serious: No
  Sender: FDA-Public Use
  Company Number: US-BAYER-2014-038416

PATIENT
  Age: 49 Year
  Sex: Female
  Weight: 126.98 kg

DRUGS (1)
  1. ALEVE TABLET [Suspect]
     Indication: BACK PAIN
     Dosage: 3 DF, EVERY 8 HOURS
     Route: 048
     Dates: start: 201401

REACTIONS (2)
  - Extra dose administered [None]
  - Drug ineffective [None]
